FAERS Safety Report 13306536 (Version 1)
Quarter: 2017Q1

REPORT INFORMATION
  Report Type: Spontaneous
  Country: GB (occurrence: GB)
  Receive Date: 20170308
  Receipt Date: 20170308
  Transmission Date: 20170428
  Serious: Yes (Death)
  Sender: FDA-Public Use
  Company Number: GB-BAYER-2017-041266

PATIENT
  Age: 47 Year
  Sex: Male

DRUGS (2)
  1. ACETYLSALICYLIC ACID({=100 MG) [Suspect]
     Active Substance: ASPIRIN
     Indication: ANTICOAGULANT THERAPY
  2. HEPARIN [Interacting]
     Active Substance: HEPARIN SODIUM
     Indication: ANTICOAGULANT THERAPY
     Dosage: UNK

REACTIONS (6)
  - Hypovolaemic shock [Fatal]
  - Drug administration error [Fatal]
  - Labelled drug-drug interaction medication error [Fatal]
  - Disseminated intravascular coagulation [Fatal]
  - Epistaxis [Fatal]
  - Carotid aneurysm rupture [Fatal]
